FAERS Safety Report 5997608-9 (Version None)
Quarter: 2008Q4

REPORT INFORMATION
  Report Type: 
  Country: None (occurrence: None)
  Receive Date: 20081212
  Receipt Date: 20081202
  Transmission Date: 20090506
  Serious: Yes (Other)
  Sender: FDA-Public Use
  Company Number: BR-PFIZER INC-2008092473

PATIENT

DRUGS (4)
  1. MARAX [Suspect]
     Indication: BRONCHITIS
     Dosage: HALF TABLET
     Route: 048
  2. FENOTEROL [Concomitant]
  3. ALBUTEROL SULFATE [Concomitant]
  4. ALL OTHER THERAPEUTIC PRODUCTS [Concomitant]

REACTIONS (5)
  - DRUG DOSE OMISSION [None]
  - DYSPNOEA [None]
  - FEELING ABNORMAL [None]
  - MALAISE [None]
  - MYOCARDIAL INFARCTION [None]
